FAERS Safety Report 4990014-5 (Version None)
Quarter: 2006Q2

REPORT INFORMATION
  Report Type: 
  Country: None (occurrence: None)
  Receive Date: 20060427
  Receipt Date: 20060418
  Transmission Date: 20061013
  Serious: Yes (Other)
  Sender: FDA-Public Use
  Company Number: B0420830A

PATIENT
  Age: 31 Year
  Sex: Male

DRUGS (3)
  1. RETROVIR [Suspect]
     Indication: HIV INFECTION
     Dates: start: 20040407
  2. EPIVIR [Suspect]
     Indication: HIV INFECTION
     Dates: start: 20040407
  3. LOPINAVIR + RITONAVIR (LOPINAVIR + RITONAVIR) [Suspect]
     Indication: HIV INFECTION
     Dates: start: 20040407

REACTIONS (14)
  - ALVEOLITIS [None]
  - ASTHENIA [None]
  - BETA HAEMOLYTIC STREPTOCOCCAL INFECTION [None]
  - C-REACTIVE PROTEIN INCREASED [None]
  - CONDITION AGGRAVATED [None]
  - DYSPNOEA [None]
  - HYPOXIA [None]
  - ILL-DEFINED DISORDER [None]
  - IMMUNE RECONSTITUTION SYNDROME [None]
  - LUNG INFECTION [None]
  - NIGHT SWEATS [None]
  - PNEUMOCYSTIS JIROVECI INFECTION [None]
  - PULMONARY FUNCTION TEST DECREASED [None]
  - PYREXIA [None]
